FAERS Safety Report 7728411-7 (Version None)
Quarter: 2011Q3

REPORT INFORMATION
  Report Type: 
  Country: None (occurrence: None)
  Receive Date: 20110905
  Receipt Date: 20110826
  Transmission Date: 20111222
  Serious: Yes (Hospitalization, Other)
  Sender: FDA-Public Use
  Company Number: PHHY2011AU71197

PATIENT
  Sex: Male

DRUGS (2)
  1. GLEEVEC [Suspect]
     Indication: CHRONIC MYELOID LEUKAEMIA
     Dosage: 400 MG, DAILY
     Route: 048
     Dates: start: 20020101
  2. PANTOPRAZOLE [Concomitant]
     Dosage: 400 MG, DAILY

REACTIONS (4)
  - POLYP [None]
  - BLOOD COUNT ABNORMAL [None]
  - GENE MUTATION IDENTIFICATION TEST POSITIVE [None]
  - HERNIA [None]
